FAERS Safety Report 6444667-5 (Version None)
Quarter: 2009Q4

REPORT INFORMATION
  Report Type: 
  Country: None (occurrence: None)
  Receive Date: 20091116
  Receipt Date: 20091116
  Transmission Date: 20100525
  Serious: No
  Sender: FDA-Public Use
  Company Number: None

PATIENT
  Sex: Female
  Weight: 57.6068 kg

DRUGS (1)
  1. LOVENOX [Suspect]
     Indication: ANTIPHOSPHOLIPID ANTIBODIES
     Dosage: 100 MG 1X DAY
     Dates: start: 20090915

REACTIONS (3)
  - PUNCTURE SITE REACTION [None]
  - SKIN DISORDER [None]
  - VESSEL PUNCTURE SITE HAEMATOMA [None]
